FAERS Safety Report 8045313-X (Version None)
Quarter: 2012Q1

REPORT INFORMATION
  Report Type: 
  Country: None (occurrence: None)
  Receive Date: 20120113
  Receipt Date: 20120111
  Transmission Date: 20120608
  Serious: Yes (Hospitalization)
  Sender: FDA-Public Use
  Company Number: GB-SHIRE-ALL1-2011-04854

PATIENT
  Sex: Female

DRUGS (2)
  1. FLECAINIDE ACETATE [Concomitant]
     Indication: PRODUCT USED FOR UNKNOWN INDICATION
     Dosage: UNK, UNKNOWN
     Route: 048
  2. REPLAGAL [Suspect]
     Indication: FABRY'S DISEASE
     Dosage: 28 MG, 1X/2WKS
     Route: 041
     Dates: start: 20110401

REACTIONS (2)
  - HOSPITALISATION [None]
  - HEART RATE IRREGULAR [None]
